FAERS Safety Report 9896288 (Version 1)
Quarter: 2014Q1

REPORT INFORMATION
  Report Type: Spontaneous
  Country: US (occurrence: US)
  Receive Date: 20140213
  Receipt Date: 20140213
  Transmission Date: 20141002
  Serious: No
  Sender: FDA-Public Use
  Company Number: US-BRISTOL-MYERS SQUIBB COMPANY-18819599

PATIENT
  Age: 63 Year
  Sex: Female
  Weight: 68.48 kg

DRUGS (2)
  1. ORENCIA FOR INJ [Suspect]
     Indication: RHEUMATOID ARTHRITIS
     Dosage: LAST DOSE: 17APR2013
     Route: 042
     Dates: start: 2013
  2. PREDNISONE [Concomitant]
     Dosage: 2 DF

REACTIONS (1)
  - Local swelling [Not Recovered/Not Resolved]
